FAERS Safety Report 6110726-X (Version None)
Quarter: 2009Q1

REPORT INFORMATION
  Report Type: 
  Country: None (occurrence: None)
  Receive Date: 20090309
  Receipt Date: 20090220
  Transmission Date: 20090719
  Serious: Yes (Other)
  Sender: FDA-Public Use
  Company Number: 2009S1001848

PATIENT
  Age: 45 Year
  Sex: Female

DRUGS (4)
  1. AMNESTEEM [Suspect]
     Indication: ACNE CYSTIC
     Dosage: 20 MG; DAILY; ORAL
     Route: 048
     Dates: start: 20090114, end: 20090101
  2. AMNESTEEM [Suspect]
     Indication: ACNE CYSTIC
     Dosage: 80 MG; DAILY; ORAL
     Route: 048
     Dates: start: 20090114, end: 20090101
  3. AMNESTEEM [Suspect]
  4. METOPROLOL TARTRATE [Concomitant]

REACTIONS (2)
  - BLOOD CHOLESTEROL INCREASED [None]
  - MIGRAINE [None]
